FAERS Safety Report 8232002-1 (Version None)
Quarter: 2012Q1

REPORT INFORMATION
  Report Type: 
  Country: None (occurrence: None)
  Receive Date: 20120323
  Receipt Date: 20120314
  Transmission Date: 20120608
  Serious: Yes (Other)
  Sender: FDA-Public Use
  Company Number: US-JNJFOC-20120307802

PATIENT
  Age: 83 Year
  Sex: Female
  Weight: 58.97 kg

DRUGS (7)
  1. CARDIZEM [Concomitant]
     Indication: HYPERTENSION
     Dosage: STARTED YEARS AGO
     Route: 065
  2. FUROSEMIDE [Concomitant]
     Indication: FLUID RETENTION
     Dosage: STARTED A FEW WEEKS AGO AND STOPPED ABOUT A WEEK AGO
     Route: 065
     Dates: start: 20120101, end: 20120301
  3. ATIVAN [Concomitant]
     Indication: ANXIETY
     Dosage: STARTED YEARS AGO
     Route: 065
  4. CLONIDINE [Concomitant]
     Indication: HYPERTENSION
     Dosage: STARTED YEARS AGO
     Route: 065
  5. LABETALOL [Concomitant]
     Indication: HYPERTENSION
     Dosage: STARTED A FEW MONTHS AGO
     Route: 065
  6. MS MYLANTA GAS MINT TABLETS [Suspect]
     Indication: FLATULENCE
     Route: 048
     Dates: start: 20120313, end: 20120313
  7. FUROSEMIDE [Concomitant]
     Indication: HYPERTENSION
     Dosage: STARTED A FEW WEEKS AGO AND STOPPED ABOUT A WEEK AGO
     Route: 065
     Dates: start: 20120101, end: 20120301

REACTIONS (2)
  - BLOOD PRESSURE INCREASED [None]
  - HEART RATE INCREASED [None]
